FAERS Safety Report 5603877-7 (Version None)
Quarter: 2008Q1

REPORT INFORMATION
  Report Type: 
  Country: None (occurrence: None)
  Receive Date: 20080128
  Receipt Date: 20080116
  Transmission Date: 20080703
  Serious: Yes (Other)
  Sender: FDA-Public Use
  Company Number: US-WYE-H02154708

PATIENT
  Sex: Male
  Weight: 63.56 kg

DRUGS (2)
  1. ROBITUSSIN COUGH [Suspect]
     Indication: DRUG ABUSE
     Dosage: UNKNOWN
     Route: 048
  2. ROBITUSSIN COUGH LONG ACTING [Suspect]
     Indication: DRUG ABUSE
     Dosage: UNKNOWN
     Route: 048

REACTIONS (1)
  - DRUG ABUSE [None]
